FAERS Safety Report 26154589 (Version 1)
Quarter: 2025Q4

REPORT INFORMATION
  Report Type: Spontaneous
  Country: JP (occurrence: JP)
  Receive Date: 20251215
  Receipt Date: 20251215
  Transmission Date: 20260117
  Serious: Yes (Hospitalization)
  Sender: MERCK SHARP & DOHME LLC
  Company Number: JP-009507513-2360747

PATIENT
  Age: 44 Year
  Sex: Female
  Weight: 52 kg

DRUGS (11)
  1. KEYTRUDA [Suspect]
     Active Substance: PEMBROLIZUMAB
     Indication: Breast cancer
     Route: 042
     Dates: start: 20250326, end: 20250625
  2. Paclitaxel Injectionc150 mg [SAWAI] [Concomitant]
     Route: 042
     Dates: start: 20250326, end: 20250710
  3. Carboplatin Intravenous Infusion 450mg [SANDOZ] [Concomitant]
     Route: 042
     Dates: start: 20250326, end: 20250710
  4. AROKARIS I.V.infusion [Concomitant]
     Route: 042
     Dates: start: 20250326
  5. Palonosetron I.V.infusion bag 0.75mg/50mL TAIHO [Concomitant]
     Route: 042
     Dates: start: 20250326
  6. DECADRON Tablets 4 mg [Concomitant]
     Route: 048
     Dates: start: 20250626
  7. Ursodeoxycholic Acid Tablets 100 mg ^TOWA^ [Concomitant]
     Dosage: TIME INTERVAL: 0.33333333 DAYS
     Route: 048
     Dates: start: 20250416
  8. NEOPHAGEN C combination tablets [Concomitant]
     Dosage: TIME INTERVAL: 0.33333333 DAYS
     Route: 048
     Dates: start: 20250416
  9. METHYCOBAL Tablets 500  g [Concomitant]
     Route: 048
     Dates: start: 20250430
  10. Furosemide tablets 10 mg [NP] [Concomitant]
     Route: 048
     Dates: start: 20250514
  11. BILANOA OD tablets 20 mg [Concomitant]
     Route: 048
     Dates: start: 20250528

REACTIONS (1)
  - Hepatic function abnormal [Recovering/Resolving]

NARRATIVE: CASE EVENT DATE: 20250626
